FAERS Safety Report 10951434 (Version 2)
Quarter: 2015Q2

REPORT INFORMATION
  Report Type: Report from Study
  Country: IT (occurrence: IT)
  Receive Date: 20150324
  Receipt Date: 20150403
  Transmission Date: 20150821
  Serious: Yes (Other)
  Sender: FDA-Public Use
  Company Number: IT-ACTAVIS-2015-06378

PATIENT
  Age: 63 Year
  Sex: Male
  Weight: 67 kg

DRUGS (11)
  1. PREGABALIN. [Concomitant]
     Active Substance: PREGABALIN
     Indication: PRODUCT USED FOR UNKNOWN INDICATION
     Dosage: UNK
     Dates: start: 20150107, end: 20150204
  2. IRINOTECAN [Suspect]
     Active Substance: IRINOTECAN
     Indication: ADENOCARCINOMA OF COLON
     Dosage: 180 ?G/M2, CYCLICAL (340MG EVERY CYCLE)
     Route: 041
     Dates: start: 20150105, end: 20150219
  3. FLUOROURACILE [Suspect]
     Active Substance: FLUOROURACIL
     Indication: ADENOCARCINOMA OF COLON
     Dosage: 400 MG/M2, UNK
     Route: 040
     Dates: start: 20150105, end: 20150219
  4. FLUOROURACILE [Suspect]
     Active Substance: FLUOROURACIL
     Dosage: 2400 MG/M2, CONTINUOUS INFUSION OVER 46 HOURS, CYCLICAL
     Route: 042
     Dates: start: 20150105, end: 20150219
  5. TARGIN [Concomitant]
     Active Substance: NALOXONE HYDROCHLORIDE\OXYCODONE HYDROCHLORIDE
     Indication: PRODUCT USED FOR UNKNOWN INDICATION
     Dosage: UNKNOWN
     Route: 065
     Dates: start: 20150107, end: 20150204
  6. INDOMETACIN [Concomitant]
     Active Substance: INDOMETHACIN
     Indication: PRODUCT USED FOR UNKNOWN INDICATION
     Dosage: UNKNOWN
     Route: 065
     Dates: start: 20150107, end: 20150217
  7. CALCIO LEVOFOLINATO [Suspect]
     Active Substance: LEVOLEUCOVORIN CALCIUM
     Indication: ADENOCARCINOMA OF COLON
     Dosage: 400 MG/M2, CYCLICAL
     Route: 042
     Dates: start: 20150105, end: 20150219
  8. ZALTRAP [Concomitant]
     Active Substance: ZIV-AFLIBERCEPT
     Indication: ADENOCARCINOMA OF COLON
     Dosage: 4 MG/KG, UNKNOWN FREQUENCY
     Route: 065
     Dates: start: 20150105, end: 20150119
  9. PARACETAMOL [Concomitant]
     Active Substance: ACETAMINOPHEN
     Indication: PRODUCT USED FOR UNKNOWN INDICATION
     Dosage: UNKNOWN
     Route: 065
     Dates: start: 20150109, end: 20150217
  10. FENTANYL. [Concomitant]
     Active Substance: FENTANYL
     Indication: PRODUCT USED FOR UNKNOWN INDICATION
     Dosage: UNKNOWN
     Route: 065
     Dates: start: 20150107, end: 20150217
  11. G-CSF [Concomitant]
     Active Substance: GRANULOCYTE COLONY-STIMULATING FACTOR NOS
     Indication: PRODUCT USED FOR UNKNOWN INDICATION
     Dosage: UNKNOWN
     Route: 065
     Dates: start: 20150109

REACTIONS (5)
  - Diarrhoea [Recovered/Resolved]
  - Vomiting [Recovered/Resolved]
  - Overdose [Unknown]
  - Epididymitis [Recovered/Resolved]
  - Asthenia [Recovered/Resolved]

NARRATIVE: CASE EVENT DATE: 20150120
